FAERS Safety Report 18067722 (Version 1)
Quarter: 2020Q3

REPORT INFORMATION
  Report Type: Spontaneous
  Country: KR (occurrence: KR)
  Receive Date: 20200725
  Receipt Date: 20200725
  Transmission Date: 20201103
  Serious: Yes (Hospitalization, Other)
  Sender: FDA-Public Use
  Company Number: KR-009507513-2007KOR009454

PATIENT
  Age: 49 Year
  Sex: Female

DRUGS (1)
  1. PEMBROLIZUMAB. [Suspect]
     Active Substance: PEMBROLIZUMAB
     Indication: THYMOMA
     Dosage: 200 MILLIGRAM, CYCLICAL

REACTIONS (3)
  - Myasthenia gravis crisis [Recovered/Resolved]
  - Blood creatine phosphokinase increased [Recovered/Resolved]
  - Product use in unapproved indication [Unknown]
